FAERS Safety Report 8387322-7 (Version None)
Quarter: 2012Q2

REPORT INFORMATION
  Report Type: 
  Country: None (occurrence: None)
  Receive Date: 20120525
  Receipt Date: 20120524
  Transmission Date: 20120825
  Serious: Yes (Hospitalization)
  Sender: FDA-Public Use
  Company Number: AU-ROCHE-1072092

PATIENT
  Sex: Female

DRUGS (14)
  1. OXYCODONE HCL [Concomitant]
  2. DITROPAN [Concomitant]
  3. MOBIC [Concomitant]
  4. ACETAMINOPHEN W/ CODEINE [Concomitant]
  5. EFFEXOR [Concomitant]
  6. MOTILIUM (AUSTRALIA) [Concomitant]
  7. PREDNISONE TAB [Concomitant]
  8. METFFORMIN HYDROCHLORIDE [Concomitant]
  9. INDERAL [Concomitant]
  10. DILANTIN [Concomitant]
  11. ACTEMRA [Suspect]
     Indication: RHEUMATOID ARTHRITIS
     Route: 065
  12. ASPRIN-EC [Concomitant]
  13. CRESTOR [Concomitant]
  14. MS CONTIN [Concomitant]

REACTIONS (1)
  - CONVULSION [None]
